FAERS Safety Report 14655588 (Version 2)
Quarter: 2019Q1

REPORT INFORMATION
  Report Type: Spontaneous
  Country: US (occurrence: US)
  Receive Date: 20180319
  Receipt Date: 20190218
  Transmission Date: 20190417
  Serious: No
  Sender: FDA-Public Use
  Company Number: US-TEVA-2018-US-864524

PATIENT
  Sex: Female

DRUGS (2)
  1. ZECUITY [Suspect]
     Active Substance: SUMATRIPTAN SUCCINATE
     Dosage: PNR USE
     Route: 065
  2. QUDEXY XR [Concomitant]
     Active Substance: TOPIRAMATE
     Route: 048

REACTIONS (2)
  - Product administration error [Unknown]
  - Application site erythema [Recovered/Resolved]
